FAERS Safety Report 12896503 (Version 3)
Quarter: 2016Q4

REPORT INFORMATION
  Report Type: Report from Study
  Country: US (occurrence: US)
  Receive Date: 20161031
  Receipt Date: 20161129
  Transmission Date: 20170207
  Serious: Yes (Other)
  Sender: FDA-Public Use
  Company Number: US-VALIDUS PHARMACEUTICALS LLC-US-2015VAL001518

PATIENT

DRUGS (11)
  1. PRILOSEC [Concomitant]
     Active Substance: OMEPRAZOLE MAGNESIUM
     Indication: PRODUCT USED FOR UNKNOWN INDICATION
     Dosage: UNK
     Route: 065
  2. PROVIGIL [Concomitant]
     Active Substance: MODAFINIL
     Indication: PRODUCT USED FOR UNKNOWN INDICATION
     Dosage: UNK
     Route: 065
  3. LASIX [Suspect]
     Active Substance: FUROSEMIDE
     Indication: PRODUCT USED FOR UNKNOWN INDICATION
     Dosage: UNK
     Route: 065
  4. AUBAGIO [Suspect]
     Active Substance: TERIFLUNOMIDE
     Dosage: 14 MG, QD
     Route: 048
  5. AUBAGIO [Suspect]
     Active Substance: TERIFLUNOMIDE
     Indication: MULTIPLE SCLEROSIS
     Dosage: 14 MG, QD
     Route: 048
     Dates: start: 20140823
  6. COPAXONE [Concomitant]
     Active Substance: GLATIRAMER ACETATE
     Indication: PRODUCT USED FOR UNKNOWN INDICATION
     Dosage: UNK
     Route: 065
  7. NUVIGIL [Concomitant]
     Active Substance: ARMODAFINIL
     Indication: PRODUCT USED FOR UNKNOWN INDICATION
     Dosage: UNK
     Route: 065
  8. AUBAGIO [Suspect]
     Active Substance: TERIFLUNOMIDE
     Dosage: 14 MG, QD
     Route: 048
     Dates: start: 20141004
  9. AUBAGIO [Suspect]
     Active Substance: TERIFLUNOMIDE
     Dosage: 0.5 DF, QD
     Route: 048
  10. AUBAGIO [Suspect]
     Active Substance: TERIFLUNOMIDE
     Dosage: 14 MG, QD
     Route: 048
     Dates: end: 20150908
  11. XANAX [Concomitant]
     Active Substance: ALPRAZOLAM
     Indication: PRODUCT USED FOR UNKNOWN INDICATION
     Dosage: UNK
     Route: 065

REACTIONS (57)
  - Pneumonia [Unknown]
  - Multiple sclerosis [Unknown]
  - Muscular weakness [Unknown]
  - Drug hypersensitivity [Unknown]
  - Decreased immune responsiveness [Unknown]
  - Bladder dysfunction [Unknown]
  - Eye disorder [Unknown]
  - Multiple sclerosis relapse [Unknown]
  - Vertigo [Unknown]
  - Anxiety [Unknown]
  - Muscle spasms [Unknown]
  - Nausea [Unknown]
  - Wrong technique in product usage process [Unknown]
  - Drug dose omission [Unknown]
  - Herpes zoster [Unknown]
  - Rash [Recovered/Resolved]
  - Cough [Unknown]
  - Tremor [Unknown]
  - Pain in extremity [Unknown]
  - JC virus test positive [Unknown]
  - Diarrhoea [Unknown]
  - Vomiting [Unknown]
  - Burning sensation [Recovered/Resolved]
  - Musculoskeletal stiffness [Unknown]
  - Back pain [Unknown]
  - Neuropathy peripheral [Unknown]
  - Condition aggravated [Unknown]
  - Sensory disturbance [Unknown]
  - Paraesthesia [Unknown]
  - Influenza like illness [Unknown]
  - Pyrexia [Unknown]
  - Peroneal nerve palsy [Unknown]
  - Dizziness [Unknown]
  - Heart rate increased [Unknown]
  - Pain [Unknown]
  - Anal incontinence [Unknown]
  - Visual acuity reduced [Unknown]
  - Gait disturbance [Unknown]
  - Temperature intolerance [Unknown]
  - Memory impairment [Not Recovered/Not Resolved]
  - Hypoaesthesia [Unknown]
  - Tachycardia [Unknown]
  - Ulcerative keratitis [Unknown]
  - Vision blurred [Recovered/Resolved]
  - Disturbance in attention [Not Recovered/Not Resolved]
  - Heart rate increased [Unknown]
  - Herpes zoster [Unknown]
  - Depression [Unknown]
  - Urinary incontinence [Unknown]
  - Pollakiuria [Unknown]
  - Demyelination [Unknown]
  - Chills [Unknown]
  - Cognitive disorder [Not Recovered/Not Resolved]
  - Scar [Unknown]
  - Headache [Recovered/Resolved]
  - Sneezing [Unknown]
  - Ataxia [Unknown]

NARRATIVE: CASE EVENT DATE: 20141031
